FAERS Safety Report 15065426 (Version 1)
Quarter: 2018Q2

REPORT INFORMATION
  Report Type: Spontaneous
  Country: US (occurrence: US)
  Receive Date: 20180605
  Receipt Date: 20180605
  Transmission Date: 20180711
  Serious: Yes (Other)
  Sender: FDA-Public Use
  Company Number: None

PATIENT
  Age: 32 Year
  Sex: Male
  Weight: 96.75 kg

DRUGS (1)
  1. ZITHROMAX [Suspect]
     Active Substance: AZITHROMYCIN DIHYDRATE
     Indication: UPPER RESPIRATORY TRACT INFECTION
     Dosage: ?          QUANTITY:1 CAPSULE(S);?
     Route: 048
     Dates: start: 20180307, end: 20180311

REACTIONS (11)
  - Anxiety [None]
  - Hypoaesthesia [None]
  - Quality of life decreased [None]
  - Depression [None]
  - Dizziness [None]
  - Unevaluable event [None]
  - Adverse drug reaction [None]
  - Pain [None]
  - Loss of employment [None]
  - Poisoning [None]
  - Syncope [None]

NARRATIVE: CASE EVENT DATE: 20180311
